FAERS Safety Report 5467390-2 (Version None)
Quarter: 2007Q3

REPORT INFORMATION
  Report Type: 
  Country: None (occurrence: None)
  Receive Date: 20070820
  Receipt Date: 20070518
  Transmission Date: 20080115
  Serious: No
  Sender: FDA-Public Use
  Company Number: WAES 0705USA03548

PATIENT
  Age: 63 Year
  Sex: Male
  Weight: 77.5651 kg

DRUGS (4)
  1. JANUVIA [Suspect]
     Indication: DIABETES MELLITUS
     Dosage: 100 MG DAILY PO
     Route: 048
     Dates: start: 20070117, end: 20070401
  2. ACTOS [Concomitant]
  3. LIPITOR [Concomitant]
  4. VYTORIN [Concomitant]

REACTIONS (5)
  - BLOOD GLUCOSE INCREASED [None]
  - INCREASED APPETITE [None]
  - POLYDIPSIA [None]
  - URINE KETONE BODY PRESENT [None]
  - WEIGHT DECREASED [None]
